FAERS Safety Report 7609361-3 (Version None)
Quarter: 2011Q3

REPORT INFORMATION
  Report Type: 
  Country: None (occurrence: None)
  Receive Date: 20110714
  Receipt Date: 20110706
  Transmission Date: 20111222
  Serious: Yes (Hospitalization, Other)
  Sender: FDA-Public Use
  Company Number: PHHY2011FR30802

PATIENT
  Sex: Female
  Weight: 60 kg

DRUGS (150)
  1. COMTAN [Suspect]
     Dosage: 0.5 TABLET 5 TIMES PER DAY
     Route: 048
     Dates: start: 20060629
  2. STALEVO 100 [Suspect]
     Dosage: UNK UKN, UNK
     Dates: end: 20101101
  3. STALEVO 100 [Suspect]
     Dosage: 5 DF, (5 TABS PER DAY0
     Dates: start: 20090216
  4. MODOPAR [Suspect]
     Dosage: 0.5 DF, FIVE TIME DAILY
     Dates: start: 20070830
  5. MODOPAR [Suspect]
     Dosage: 250 MG AT 1 CAPSULE 5 TIMES PER DAY
     Dates: start: 20070109
  6. MODOPAR [Suspect]
     Dosage: 250 MG AT 1 CAPSULE 3 TIMES PER DAY, MODOPAR 125 MG AT 1 TABLET IN THE MORNING, MODOPAR 62.5
     Dates: start: 20070510
  7. MODOPAR [Suspect]
     Dosage: 62.5 MG 5 TIMES PER DAY
     Dates: start: 20090505
  8. MODOPAR [Suspect]
     Dosage: 125 MG SCATTERED TAB IF NEEDED, 62.5 MG 5 TABS/D
     Dates: start: 20090818
  9. MODOPAR [Suspect]
     Dosage: 125 MG TAB IN EVENING, 62.5 MG 5 TAB/DAY
     Dates: start: 20090917
  10. MODOPAR [Suspect]
     Dosage: 125 MG TAB IN EVENING, 62.5 MG 5 TABS PER DAY
     Dates: start: 20091102
  11. MODOPAR [Suspect]
     Dosage: 62.5 MG, 5 TABS/DAY
     Dates: start: 20081115
  12. PRAMIPEXOLE DIHYCHLLORIDE [Suspect]
     Dosage: 0.7 MG, TID
     Dates: start: 20060622
  13. EFFEXOR [Concomitant]
     Dosage: UNK UKN, UNK
     Dates: start: 20030905
  14. XANAX [Concomitant]
     Dosage: 0.5 MG, UNK
     Dates: start: 20080530
  15. XANAX [Concomitant]
     Dosage: 0.5 MG, TID
     Dates: start: 20080625
  16. XANAX [Concomitant]
     Dosage: 0.5 MG, TID
     Dates: start: 20050123
  17. KETOCONAZOLE [Concomitant]
     Dosage: UNK UKN, UNK
     Dates: start: 20060918
  18. STILNOX                                 /FRA/ [Concomitant]
     Dosage: 1 DF, UNK
     Dates: start: 20040915
  19. STALEVO 100 [Suspect]
     Dosage: 5 DF, 5 TAB/DAY
     Dates: start: 20091102
  20. MODOPAR [Suspect]
     Indication: PARKINSON'S DISEASE
     Dosage: 125 MG, QD
  21. MODOPAR [Suspect]
     Dosage: 125 MG, BID (1 IN THE MORNING, 1 IN THE EVENING)
     Dates: start: 20090302
  22. MODOPAR [Suspect]
     Dosage: 125 MG, UNK
     Dates: start: 20090430
  23. MODOPAR [Suspect]
     Dosage: 125 MG, 1 TAB PER DAY
     Dates: start: 20090725
  24. MODOPAR [Suspect]
     Dosage: 125 MG, UNK
     Dates: start: 20100727
  25. MODOPAR [Suspect]
     Dosage: 250 MG AT 1 CAPSULE 3 TIMES PER DAY
     Dates: start: 20071205
  26. MODOPAR [Suspect]
     Dosage: 4 TIMES PER DAY
     Route: 048
     Dates: start: 20080530
  27. MODOPAR [Suspect]
     Dosage: 125 MG ONCE PER DAY, MODOPAR 62.5 MG AT 5 TIMES PER DAY
     Dates: start: 20080915
  28. MODOPAR [Suspect]
     Dosage: 250 MG, TID, 62.5 MG 1 TABLET MID DAY
     Dates: start: 20020219
  29. MODOPAR [Suspect]
     Dosage: 250 MG, TID 62.5 MG 1 TAB/DAY
     Dates: start: 20040901
  30. MODOPAR [Suspect]
     Dosage: 250 MG, TID
     Dates: start: 20041104
  31. MODOPAR [Suspect]
     Dosage: 250 MG, TID 62.5 MG 1 TAB/DAY
     Dates: start: 20041214
  32. EFFEXOR [Concomitant]
     Dosage: 50 MG, QD
     Dates: start: 20080105
  33. EFFEXOR [Concomitant]
     Dosage: 50 MG, BID
     Dates: start: 20020222
  34. EFFEXOR [Concomitant]
     Dosage: 75 MG, BID
     Dates: start: 20081125
  35. XANAX [Concomitant]
     Dosage: 0.5 MG, QID
  36. ACETAMINOPHEN AND TRAMADOL HCL [Concomitant]
     Dosage: 1 DF, QD
     Dates: start: 20080105
  37. IMOVANE [Concomitant]
     Dosage: 7.5 MG, QHS
  38. ATHYMIL [Concomitant]
     Dosage: 30 MG, QD
     Dates: start: 20080130
  39. ATHYMIL [Concomitant]
     Dosage: 30 MG, UNK
     Dates: start: 20090917
  40. NECYRANE [Concomitant]
     Dosage: UNK UKN, UNK
     Dates: start: 20060313
  41. PRAZEPAM [Concomitant]
     Dosage: 10 MG, UNK
     Dates: start: 20090803
  42. HEPTAMINOL [Concomitant]
     Dosage: 30 DRP, TID
     Dates: start: 20030408
  43. COMTAN [Suspect]
     Dosage: 0.5 TABLET 3 TIMES PER DAY
     Route: 048
     Dates: start: 20071205
  44. STALEVO 100 [Suspect]
     Dosage: 1 TABLET 5 TIMES PER DAY
     Route: 048
     Dates: start: 20080530
  45. STALEVO 100 [Suspect]
     Dosage: 5 DF, 5 TAB/DAY
     Dates: start: 20090725
  46. STALEVO 100 [Suspect]
     Dosage: 5 DF,PER DAY
     Dates: start: 20091219
  47. STALEVO 100 [Suspect]
     Dosage: 5 DF, (5 TABS PER DAY0
     Dates: start: 20080827
  48. MODOPAR [Suspect]
     Dosage: 125 MG, 1 TAB IN EVENING
     Dates: start: 20090602
  49. MODOPAR [Suspect]
     Dosage: UNK UKN, UNK
     Dates: start: 19950101
  50. MODOPAR [Suspect]
     Dosage: 125 MG AT 1 TABLET DAILY, MODOPAR 62.5 MG,
     Dates: start: 20081029
  51. MODOPAR [Suspect]
     Dosage: 250 MG, UNK
     Dates: start: 20030905
  52. PERGOLIDE MESYLATE [Suspect]
     Dosage: UNK UKN, UNK
     Dates: start: 20030201
  53. PERGOLIDE MESYLATE [Suspect]
     Dosage: 0.5 MG, TID
     Dates: start: 20030905
  54. EFFEXOR [Concomitant]
     Dosage: 50 MG, QD
     Dates: start: 20060622
  55. EFFEXOR [Concomitant]
     Dosage: 75 MG, BID
     Dates: start: 20090818
  56. EFFEXOR [Concomitant]
     Dosage: 75 MG, BID
     Dates: start: 20090917
  57. EFFEXOR [Concomitant]
     Dosage: 75 MG, BID
     Dates: start: 20091019
  58. XANAX [Concomitant]
     Dosage: 0.5 MG, 5 TAB/DAY
     Dates: start: 20090406
  59. XANAX [Concomitant]
     Dosage: 0.25 MG, TID
     Dates: start: 20030905
  60. XANAX [Concomitant]
     Dosage: 0.5 MG, TID
     Dates: start: 20041104
  61. XANAX [Concomitant]
     Dosage: 0.25 MG, HALF TABLET 5 TIMES A DAY
     Dates: start: 20080715
  62. IMOVANE [Concomitant]
     Dosage: 2 DF, QHS
     Dates: start: 20020219
  63. IMOVANE [Concomitant]
     Dosage: 1 DF, UNK
     Dates: start: 20080715
  64. ATHYMIL [Concomitant]
     Dosage: 50 MG, UNK
     Dates: start: 20090725
  65. ATARAX [Concomitant]
     Dosage: 25 MG, TID
     Dates: start: 20080125
  66. COMTAN [Suspect]
     Indication: PARKINSON'S DISEASE
     Dosage: 1 DF, (1 TAB IN MORNING)
     Route: 048
     Dates: start: 20050123, end: 20050301
  67. STALEVO 100 [Suspect]
     Dosage: 5 DF, 5 TABLETS PER DAY
     Dates: start: 20090415
  68. STALEVO 100 [Suspect]
     Dosage: 6 DF, PER DAY
     Dates: start: 20100302
  69. MODOPAR [Suspect]
     Dosage: SCATTERED TAB BID, MODOPAR 62.5, 5 TABS/DAY
     Dates: start: 20090725
  70. MODOPAR [Suspect]
     Dosage: 125 MG ONE SCATTERED TAB PER DAY, 62.5 MG 3 TAB/DAY
     Dates: start: 20100302
  71. EFFEXOR [Concomitant]
     Dosage: 75 MG, BID
     Dates: start: 20110406
  72. XANAX [Concomitant]
     Dosage: 0.25 MG, TID
     Dates: start: 20080130
  73. XANAX [Concomitant]
     Dosage: 0.5 MG, 5 TAB/DAY
     Dates: start: 20090725
  74. XANAX [Concomitant]
     Dosage: 0.5 MG, 5 TAB/DAY
     Dates: start: 20091019
  75. XANAX [Concomitant]
     Dosage: 0.25 MG, TID
     Dates: start: 20020322
  76. XANAX [Concomitant]
     Dosage: 0.25 MG,4 T/DAY
     Dates: start: 20040728
  77. ACETAMINOPHEN AND TRAMADOL HCL [Concomitant]
     Dosage: 1 DF, TID
     Dates: start: 20060622
  78. ATHYMIL [Concomitant]
     Dosage: 10 MG, 5 TAB PER DAY
     Dates: start: 20090205
  79. CARBOCISTEINE [Concomitant]
  80. ACETAMINOPHEN [Concomitant]
     Dosage: 500 MG, UNK
     Dates: start: 20090602
  81. ATARAX [Concomitant]
     Dosage: 25 MG, UNK
     Dates: start: 20090209
  82. ATARAX [Concomitant]
     Dosage: 5 DF, UNK
     Dates: start: 20090415
  83. ATARAX [Concomitant]
     Dosage: 4 DF, UNK
     Dates: start: 20090602
  84. DEPAKOTE [Concomitant]
     Dosage: 250 MG, BID
     Dates: start: 20090512
  85. ELUDRIL [Concomitant]
  86. LEVONORGESTREL AND ETHINYL ESTRADIOL [Concomitant]
  87. AMOXICILLIN [Concomitant]
     Dosage: 1 G, BID
     Dates: start: 20041117
  88. COMTAN [Suspect]
     Dosage: 0.5 TABLET FIVE TIMES PER DAY
     Route: 048
     Dates: start: 20080105
  89. STALEVO 100 [Suspect]
     Indication: PARKINSON'S DISEASE
     Dosage: 1 TABLET 5 TIMES PER DAY
     Route: 048
  90. STALEVO 100 [Suspect]
     Dosage: 5 DF, (5 TABS PER DAY0
     Dates: start: 20081212
  91. STALEVO 100 [Suspect]
     Dosage: 5 DF, (5 TABS PER DAY0
     Dates: start: 20090105
  92. MODOPAR [Suspect]
     Dosage: 125 MG, 1 TAB IN EVENING
     Dates: start: 20090927
  93. MODOPAR [Suspect]
     Dosage: 125 MG, 1 TAB IN EVENING
     Dates: start: 20091102
  94. MODOPAR [Suspect]
     Dosage: 62.5 MG AT 1 CAPSULE 4 TIMES PER DAY
     Dates: start: 20080304
  95. MODOPAR [Suspect]
     Dosage: 125 MG 1 TO 3 TIMES PER DAYUNK
     Route: 048
     Dates: start: 20080304
  96. MODOPAR [Suspect]
     Dosage: 250 MG, BID 62.5 MGG 1TAB/DAY
     Dates: start: 20020813
  97. EFFEXOR [Concomitant]
     Dosage: 50 MG, BID
     Dates: start: 20080130
  98. EFFEXOR [Concomitant]
     Dosage: 75 MG, BID
     Dates: start: 20080625
  99. EFFEXOR [Concomitant]
     Dosage: 50 MG, BID
     Dates: start: 20040915
  100. XANAX [Concomitant]
     Dosage: 0.5 MG, 5/ DAY
     Dates: start: 20090205
  101. XANAX [Concomitant]
     Dosage: 0.5 MG, 5 TAB/DAY
     Dates: start: 20090602
  102. IBUPROFEN [Concomitant]
     Dosage: 400 MG, UNK
  103. ZOLOFT [Concomitant]
     Dosage: 50 MG, BID
     Dates: start: 20040915
  104. STALEVO 100 [Suspect]
     Dosage: 1 DF, QID
     Route: 048
     Dates: start: 20080304
  105. MODOPAR [Suspect]
     Dosage: 125 MG AT 1 TABLET 2 TO 3 TIMES PER DAY, MODOPAR 62.5 MG AT 1 TABLET 4 TIMES PER
     Route: 048
  106. MODOPAR [Suspect]
     Dosage: 62.5 MG, 4 TABS/DAY
     Dates: start: 20080715
  107. EFFEXOR [Concomitant]
     Dosage: 50 MG, TID
     Dates: start: 20050331
  108. EFFEXOR [Concomitant]
     Dosage: 75 MG, UNK
     Dates: start: 20090602
  109. EFFEXOR [Concomitant]
     Dosage: 50 MG, BID
     Dates: start: 20020219
  110. XANAX [Concomitant]
     Dosage: 0.5 MG, 5 TABS/DAY
     Dates: start: 20090512
  111. XANAX [Concomitant]
     Dosage: 0.25 MG, TID
     Dates: start: 20020813
  112. XANAX [Concomitant]
     Dosage: 0.5 MG, TID
     Dates: start: 20040925
  113. IMOVANE [Concomitant]
     Dosage: 1 DF, BID
     Dates: start: 20020322
  114. LYSOPAINE [Concomitant]
  115. ACETAMINOPHEN [Concomitant]
     Dosage: 1000 MG, TID
     Dates: start: 20041214
  116. ECONAZOLE NITRATE [Concomitant]
     Dosage: UNK UKN, UNK
     Dates: start: 20060918
  117. DEPAKOTE [Concomitant]
     Dosage: 500 MG, BID
     Dates: start: 20091019
  118. STALEVO 100 [Suspect]
     Dosage: 5 DF, 5 TAB/DAY
     Dates: start: 20090818
  119. MODOPAR [Suspect]
     Dosage: 125 MG, 1 TAB PER DAY
     Dates: start: 20090818
  120. MODOPAR [Suspect]
     Dosage: 62.5 MG AT 4 TIMES PER DAY
     Dates: start: 20080530
  121. MODOPAR [Suspect]
     Dosage: 62.5 MG, 5 TABS/DAY
     Dates: start: 20090216
  122. PERGOLIDE MESYLATE [Suspect]
     Dosage: 1 MG, TID
     Dates: start: 20041021
  123. PERGOLIDE MESYLATE [Suspect]
     Dosage: 1 MG, UNK
     Dates: start: 20050123
  124. EFFEXOR [Concomitant]
     Dosage: 50 MG, UNK
     Dates: start: 20081029
  125. XANAX [Concomitant]
     Dosage: 0.5 MG, TID
     Dates: start: 20041214
  126. IMOVANE [Concomitant]
     Dosage: 1 DF, BID
     Dates: start: 20020813
  127. ATHYMIL [Concomitant]
     Dosage: 30 MG, UNK
     Dates: start: 20090602
  128. ATHYMIL [Concomitant]
     Dosage: 30 MG, UNK
     Dates: start: 20091219
  129. LOXAPINE HCL [Concomitant]
     Dosage: 15 DRP, TID
     Dates: start: 20080130
  130. CEFUROXIME [Concomitant]
     Dosage: 250 MG, BID
  131. DEPAKOTE [Concomitant]
     Dosage: 250 MG, (2 IN MORNING, 2 IN EVENING)
     Dates: start: 20090519
  132. INTETRIX [Concomitant]
     Dosage: 4 DF, UNK
  133. GAVISCON                                /GFR/ [Concomitant]
     Dosage: UNK UKN, UNK
     Dates: start: 20040915
  134. STALEVO 100 [Suspect]
     Dosage: 5 DF, 5 TAB/DAY
     Dates: start: 20091019
  135. MODOPAR [Suspect]
     Dosage: 125 MG,1/DAY PLUS 1 IF NEEDED, 62.5 MG, 5 TABS/DAY
     Dates: start: 20090406
  136. MODOPAR [Suspect]
     Dosage: 250 MG AT 1 CAPSULE 3 TIMES PER DAY, MODOPAR 125 MG AT 1 TABLET IN THE MORNING, MODOPAR 62.5
     Dates: start: 20060622
  137. MODOPAR [Suspect]
     Dosage: 125 MG TWICE PER DAY, MODOPAR 62.5 MG AT 1 CAPSULE 4 TIMES PER DAY DAILY
     Dates: start: 20080206
  138. MODOPAR [Suspect]
     Dosage: 250 MG, TID
     Dates: start: 20020219
  139. MODOPAR [Suspect]
     Dosage: 125 MG 4 TIMES PER DAY
     Route: 048
     Dates: start: 20080625
  140. MODOPAR [Suspect]
     Dosage: 250 MG, BID, 62.5 MG BID
     Dates: start: 20020322
  141. MODOPAR [Suspect]
     Dosage: 62.5 MG, 5 TABS/DAY
     Dates: start: 20090101
  142. EFFEXOR [Concomitant]
     Dosage: 37.5 MG, TID
     Dates: start: 20070109
  143. EFFEXOR [Concomitant]
     Dosage: 75 MG, TID
     Dates: start: 20090209
  144. EFFEXOR [Concomitant]
     Dosage: 50 MG, BID
     Dates: start: 20020813
  145. EFFEXOR [Concomitant]
     Dosage: 50 MG, 5 TABS/ DAY
     Dates: start: 20080715
  146. XANAX [Concomitant]
     Dosage: 0.5 MG, TID
     Dates: start: 20050331
  147. ATHYMIL [Concomitant]
     Dosage: 30 MG, UNK
     Dates: start: 20090512
  148. ATHYMIL [Concomitant]
     Dosage: 30 MG, UNK
     Dates: start: 20091112
  149. LORAZEPAM [Concomitant]
     Dosage: 2.5 MG, UNK
     Dates: start: 20090209
  150. ATARAX [Concomitant]
     Dosage: 5 DF, UNK
     Dates: start: 20090406

REACTIONS (29)
  - COMPULSIVE SHOPPING [None]
  - PSYCHOMOTOR HYPERACTIVITY [None]
  - CORNEAL REFLEX DECREASED [None]
  - WEIGHT INCREASED [None]
  - RED BLOOD CELL SEDIMENTATION RATE INCREASED [None]
  - C-REACTIVE PROTEIN INCREASED [None]
  - ABNORMAL BEHAVIOUR [None]
  - HYPOMANIA [None]
  - DYSTHYMIC DISORDER [None]
  - FALL [None]
  - THYMUS DISORDER [None]
  - DEPRESSED MOOD [None]
  - DYSPNOEA [None]
  - PSYCHOTIC BEHAVIOUR [None]
  - BACK PAIN [None]
  - IRRITABILITY [None]
  - MUSCULOSKELETAL PAIN [None]
  - MUSCLE SPASMS [None]
  - AMIMIA [None]
  - AGITATION [None]
  - SUICIDE ATTEMPT [None]
  - AKINESIA [None]
  - MUSCLE RIGIDITY [None]
  - BALANCE DISORDER [None]
  - CHROMATURIA [None]
  - SUICIDAL IDEATION [None]
  - TREMOR [None]
  - NECK PAIN [None]
  - DEPRESSION [None]
